FAERS Safety Report 24768775 (Version 1)
Quarter: 2024Q4

REPORT INFORMATION
  Report Type: Spontaneous
  Country: PT (occurrence: PT)
  Receive Date: 20241224
  Receipt Date: 20241224
  Transmission Date: 20250115
  Serious: Yes (Hospitalization, Other)
  Sender: GLAND PHARMA LTD
  Company Number: PT-GLANDPHARMA-PT-2024GLNLIT01292

PATIENT
  Age: 20 Year
  Sex: Male

DRUGS (2)
  1. DEXAMETHASONE SODIUM PHOSPHATE [Suspect]
     Active Substance: DEXAMETHASONE SODIUM PHOSPHATE
     Indication: COVID-19
     Route: 065
  2. REMDESIVIR [Concomitant]
     Active Substance: REMDESIVIR
     Indication: COVID-19
     Route: 065

REACTIONS (5)
  - Hyperglycaemia [Recovered/Resolved]
  - Hyperadrenocorticism [Recovered/Resolved]
  - Cushing^s syndrome [Recovered/Resolved]
  - Hypertension [Recovered/Resolved]
  - Off label use [Unknown]
